FAERS Safety Report 8450890-0 (Version None)
Quarter: 2012Q2

REPORT INFORMATION
  Report Type: 
  Country: None (occurrence: None)
  Receive Date: 20120620
  Receipt Date: 20120611
  Transmission Date: 20120825
  Serious: Yes (Life-Threatening, Hospitalization)
  Sender: FDA-Public Use
  Company Number: CA-JNJFOC-20120414342

PATIENT
  Sex: Male

DRUGS (3)
  1. OMEPRAZOLE (PRISOLEC) [Concomitant]
  2. LIPITOR [Concomitant]
  3. STELARA [Suspect]
     Indication: PSORIASIS
     Route: 058
     Dates: start: 20110701

REACTIONS (1)
  - MYOCARDIAL INFARCTION [None]
